FAERS Safety Report 7426897-9 (Version None)
Quarter: 2011Q2

REPORT INFORMATION
  Report Type: 
  Country: None (occurrence: None)
  Receive Date: 20110413
  Receipt Date: 20110328
  Transmission Date: 20111010
  Serious: Yes (Death)
  Sender: FDA-Public Use
  Company Number: 2011BN000034

PATIENT
  Age: 10 Year
  Sex: Female

DRUGS (12)
  1. VINCRISTINE [Concomitant]
  2. CISPLATIN [Concomitant]
  3. CYCLOPHOSPHAMIDE [Concomitant]
  4. ETOPOSIDE [Concomitant]
  5. MELPHALAN HYDROCHLORIDE [Suspect]
     Indication: STEM CELL TRANSPLANT
     Dosage: 50 MG/M**2; QD;
  6. THIOTEPA [Suspect]
     Indication: STEM CELL TRANSPLANT
     Dosage: 250 MG/M**2; QD;
  7. NYSTATIN [Concomitant]
  8. AMIFOSTINE [Concomitant]
  9. PENTAMIDINE ISETHIONATE [Concomitant]
  10. CASPOFUNGIN [Concomitant]
  11. BUSULFAN [Suspect]
     Indication: STEM CELL TRANSPLANT
     Dosage: 3.2 MG/KG; QD;
  12. ACICLOVIR [Concomitant]

REACTIONS (5)
  - POLYOMAVIRUS-ASSOCIATED NEPHROPATHY [None]
  - APNOEA [None]
  - HYPOGAMMAGLOBULINAEMIA [None]
  - CONVULSION [None]
  - LYMPHOPENIA [None]
